FAERS Safety Report 9872714 (Version 2)
Quarter: 2014Q1

REPORT INFORMATION
  Report Type: Other
  Country: US (occurrence: US)
  Receive Date: 20140206
  Receipt Date: 20140206
  Transmission Date: 20141002
  Serious: Yes (Hospitalization, Disabling)
  Sender: FDA-Public Use
  Company Number: US-ACORDA-ACO_100325_2013

PATIENT
  Sex: Female

DRUGS (2)
  1. AMPYRA [Suspect]
     Indication: GAIT DISTURBANCE
     Dosage: 10 MG, BID
     Route: 065
     Dates: start: 20130311, end: 201310
  2. AMPYRA [Suspect]
     Dosage: 10 MG, BID
     Route: 065
     Dates: start: 201311

REACTIONS (3)
  - Cellulitis [Recovered/Resolved]
  - Mobility decreased [Recovered/Resolved]
  - Pruritus [Not Recovered/Not Resolved]
